FAERS Safety Report 19924000 (Version 2)
Quarter: 2021Q4

REPORT INFORMATION
  Report Type: Spontaneous
  Country: DE (occurrence: DE)
  Receive Date: 20211006
  Receipt Date: 20211011
  Transmission Date: 20220303
  Serious: Yes (Other)
  Sender: FDA-Public Use
  Company Number: DE-ROCHE-2809878

PATIENT
  Age: 54 Year
  Sex: Female
  Weight: 79 kg

DRUGS (14)
  1. TRASTUZUMAB [Suspect]
     Active Substance: TRASTUZUMAB
     Indication: Breast cancer metastatic
     Dosage: 640 MILLIGRAM,CYCLE(ON SECOND DAY OF FIRST CYCLE)STARTDATE:25-MAR-2021
     Route: 042
     Dates: start: 20210325, end: 2021
  2. PERTUZUMAB [Suspect]
     Active Substance: PERTUZUMAB
     Indication: Breast cancer metastatic
     Dosage: 840 MILLIGRAM,CYCLE(ON FIRST DAY OF FIRST CYCLE)
     Route: 042
     Dates: start: 20210325, end: 20210325
  3. DOCETAXEL [Suspect]
     Active Substance: DOCETAXEL
     Indication: Breast cancer metastatic
     Dosage: START DATE AND END DATE:  25-MAR-2021
     Route: 065
     Dates: start: 20210325, end: 20210325
  4. DOCETAXEL [Suspect]
     Active Substance: DOCETAXEL
     Dosage: START DATE AND END DATE: 26-MAR-2021
     Route: 065
     Dates: start: 20210326, end: 20210326
  5. DOCETAXEL [Suspect]
     Active Substance: DOCETAXEL
     Dosage: START DATE: 30-MAR-2021
     Route: 065
     Dates: start: 20210330
  6. KANJINTI [Suspect]
     Active Substance: TRASTUZUMAB-ANNS
     Indication: Product used for unknown indication
     Dosage: UNK
     Route: 065
  7. DIMETHINDENE MALEATE [Concomitant]
     Active Substance: DIMETHINDENE MALEATE
     Dosage: 4 MILLIGRAM (BEFORE INFUSION OF TRASTUZUMAB)
     Route: 042
  8. DEXAMETHASONE [Concomitant]
     Active Substance: DEXAMETHASONE
     Dosage: 3 MILLIGRAM (BEFORE INFUSION OF TRASTUZUMAB, PERJETA FOR 15 MINUTES)
  9. DEXAMETHASONE [Concomitant]
     Active Substance: DEXAMETHASONE
     Dosage: 8 MILLIGRAM (BEFORE INFUSION OF TRASTUZUMAB, PERJETA FOR 15 MINUTES)
     Route: 042
  10. GRANISETRON [Concomitant]
     Active Substance: GRANISETRON
     Indication: Premedication
     Dosage: 3 MILLIGRAM (AMPULE)
     Route: 042
  11. LAXOFALK [Concomitant]
     Dosage: 40 MILLIGRAM (0.33 DAY)
  12. TORSEMIDE [Concomitant]
     Active Substance: TORSEMIDE
     Dosage: 10 MILLIGRAM, QD
  13. PANTOPRAZOLE SODIUM [Concomitant]
     Active Substance: PANTOPRAZOLE SODIUM
     Dosage: 40 MILLIGRAM, BID
  14. FEBUXOSTAT [Concomitant]
     Active Substance: FEBUXOSTAT
     Dosage: 80 MILLIGRAM, QD

REACTIONS (9)
  - Acute hepatic failure [Recovered/Resolved]
  - Haemolytic anaemia [Recovered/Resolved]
  - Circulatory collapse [Unknown]
  - Metastases to bone marrow [Unknown]
  - Acute kidney injury [Recovered/Resolved]
  - Infusion related reaction [Recovering/Resolving]
  - Folate deficiency [Unknown]
  - Dyspnoea [Unknown]
  - Asthenia [Unknown]

NARRATIVE: CASE EVENT DATE: 20210325
